FAERS Safety Report 15678145 (Version 1)
Quarter: 2018Q4

REPORT INFORMATION
  Report Type: Spontaneous
  Country: ES (occurrence: ES)
  Receive Date: 20181201
  Receipt Date: 20181201
  Transmission Date: 20190205
  Serious: Yes (Other)
  Sender: FDA-Public Use
  Company Number: ES-ACCORD-094467

PATIENT
  Age: 77 Year
  Sex: Male
  Weight: 95.8 kg

DRUGS (2)
  1. ALLOPURINOL. [Suspect]
     Active Substance: ALLOPURINOL
     Indication: BLOOD URIC ACID
     Route: 048
     Dates: start: 20130301
  2. HYDROCHLOROTHIAZIDE. [Interacting]
     Active Substance: HYDROCHLOROTHIAZIDE
     Indication: HYPERTENSION
     Route: 048
     Dates: start: 20130706

REACTIONS (4)
  - Inflammation [Unknown]
  - Pruritus [Unknown]
  - Drug interaction [Unknown]
  - Drug hypersensitivity [Unknown]

NARRATIVE: CASE EVENT DATE: 20130303
